FAERS Safety Report 6136961-2 (Version None)
Quarter: 2009Q1

REPORT INFORMATION
  Report Type: 
  Country: None (occurrence: None)
  Receive Date: 20090325
  Receipt Date: 20090308
  Transmission Date: 20090719
  Serious: Yes (Hospitalization)
  Sender: FDA-Public Use
  Company Number: 2007S1005503

PATIENT
  Age: 56 Year
  Sex: Female
  Weight: 59.8748 kg

DRUGS (5)
  1. EZ PREP KIT [Suspect]
     Indication: COLONOSCOPY
     Dosage: 75 ML; TOTAL; PO
     Route: 048
     Dates: start: 20070815, end: 20070815
  2. DIOVAN HCT [Concomitant]
  3. ACETYLSALICYLIC ACID [Concomitant]
  4. INSULIN [Concomitant]
  5. REGLAN [Concomitant]

REACTIONS (3)
  - JOINT STIFFNESS [None]
  - RENAL FAILURE CHRONIC [None]
  - RENAL TUBULAR NECROSIS [None]
